FAERS Safety Report 7864555-7 (Version None)
Quarter: 2011Q4

REPORT INFORMATION
  Report Type: 
  Country: None (occurrence: None)
  Receive Date: 20111028
  Receipt Date: 20111024
  Transmission Date: 20120403
  Serious: No
  Sender: FDA-Public Use
  Company Number: US-PFIZER INC-2009211024

PATIENT
  Age: 48 Year
  Sex: Male

DRUGS (1)
  1. DILANTIN [Suspect]
     Dosage: UNK

REACTIONS (3)
  - MALAISE [None]
  - ACCIDENT [None]
  - DRUG LEVEL FLUCTUATING [None]
